FAERS Safety Report 9728188 (Version 3)
Quarter: 2014Q2

REPORT INFORMATION
  Report Type: Spontaneous
  Country: US (occurrence: None)
  Receive Date: 20131202
  Receipt Date: 20140512
  Transmission Date: 20141212
  Serious: Yes (Death, Hospitalization)
  Sender: FDA-Public Use
  Company Number: SYM-2013-13317

PATIENT
  Age: 41 Year
  Sex: Female

DRUGS (1)
  1. XENAZINE [Suspect]
     Indication: HUNTINGTON^S DISEASE
     Dosage: 12.5 MG, 3 IN 1 D, ORAL
     Route: 048
     Dates: start: 201308

REACTIONS (2)
  - Movement disorder [None]
  - Lower limb fracture [None]
